FAERS Safety Report 20298625 (Version 1)
Quarter: 2022Q1

REPORT INFORMATION
  Report Type: Spontaneous
  Country: US (occurrence: None)
  Receive Date: 20220104
  Receipt Date: 20220104
  Transmission Date: 20220423
  Serious: Yes (Hospitalization)
  Sender: FDA-Public Use
  Company Number: None

PATIENT
  Age: 47 Year
  Sex: Female

DRUGS (5)
  1. HUMIRA [Suspect]
     Active Substance: ADALIMUMAB
  2. DILANTIN CHW [Concomitant]
  3. PULMICORT INH [Concomitant]
  4. SINGULAIR [Concomitant]
  5. XOPENEX CONC NEB [Concomitant]

REACTIONS (2)
  - Infection [None]
  - Condition aggravated [None]

NARRATIVE: CASE EVENT DATE: 20220103
